FAERS Safety Report 4543364-0 (Version None)
Quarter: 2005Q1

REPORT INFORMATION
  Report Type: 
  Country: None (occurrence: None)
  Receive Date: 20050103
  Receipt Date: 20030703
  Transmission Date: 20050727
  Serious: Yes (Death, Hospitalization, Other)
  Sender: FDA-Public Use
  Company Number: TW-BRISTOL-MYERS SQUIBB COMPANY-12317640

PATIENT
  Age: 63 Year
  Sex: Female

DRUGS (6)
  1. TAXOL [Suspect]
     Indication: GASTRIC CANCER
     Dosage: DAY 8
     Route: 042
     Dates: start: 20030410, end: 20030619
  2. UFT [Suspect]
     Indication: GASTRIC CANCER
     Route: 048
     Dates: start: 20030410, end: 20030625
  3. LEUCOVORIN [Suspect]
     Indication: GASTRIC CANCER
     Route: 048
     Dates: start: 20030410, end: 20030625
  4. GLIBENCLAMIDE [Concomitant]
     Dates: start: 20020603
  5. TENORMIN [Concomitant]
     Dates: start: 20030116
  6. ZOLPIDEM TARTRATE [Concomitant]
     Dates: start: 20030508

REACTIONS (6)
  - ANAEMIA [None]
  - DIZZINESS [None]
  - GASTRECTOMY [None]
  - GASTRIC CANCER [None]
  - SKULL FRACTURE [None]
  - SYNCOPE [None]
